FAERS Safety Report 15859383 (Version 3)
Quarter: 2019Q3

REPORT INFORMATION
  Report Type: Spontaneous
  Country: US (occurrence: US)
  Receive Date: 20190123
  Receipt Date: 20190708
  Transmission Date: 20191004
  Serious: No
  Sender: FDA-Public Use
  Company Number: US-SA-2019SA016951

PATIENT
  Age: 32 Year
  Sex: Female

DRUGS (17)
  1. ONDANSETRON [Concomitant]
     Active Substance: ONDANSETRON
     Dosage: 4 MG
  2. TIZANIDINE. [Concomitant]
     Active Substance: TIZANIDINE
  3. KLONOPIN [Concomitant]
     Active Substance: CLONAZEPAM
  4. AMITRIPTYLINE [Concomitant]
     Active Substance: AMITRIPTYLINE
  5. AMLODIPINE [Concomitant]
     Active Substance: AMLODIPINE BESYLATE
     Dosage: 5 MG
  6. GABAPENTIN. [Concomitant]
     Active Substance: GABAPENTIN
  7. DESOXIMETASONE. [Concomitant]
     Active Substance: DESOXIMETASONE
     Dosage: 0.25 %
  8. ADDERALL [Concomitant]
     Active Substance: AMPHETAMINE ASPARTATE\AMPHETAMINE SULFATE\DEXTROAMPHETAMINE SACCHARATE\DEXTROAMPHETAMINE SULFATE
  9. DUPIXENT [Suspect]
     Active Substance: DUPILUMAB
     Indication: DERMATITIS ATOPIC
     Dosage: 300 MG, QOW
     Route: 058
     Dates: start: 20190103
  10. RISPERIDONE. [Concomitant]
     Active Substance: RISPERIDONE
  11. TOPIRAMATE. [Concomitant]
     Active Substance: TOPIRAMATE
  12. ATENOLOL. [Concomitant]
     Active Substance: ATENOLOL
  13. CHLORTHALIDONE. [Concomitant]
     Active Substance: CHLORTHALIDONE
  14. AMPHETAMINE [Concomitant]
     Active Substance: AMPHETAMINE
  15. HYDROXYZINE [Concomitant]
     Active Substance: HYDROXYZINE HYDROCHLORIDE
     Dosage: 25 MG
  16. TRAZODONE [Concomitant]
     Active Substance: TRAZODONE HYDROCHLORIDE
  17. HALOPERIDOL. [Concomitant]
     Active Substance: HALOPERIDOL

REACTIONS (6)
  - Skin irritation [Not Recovered/Not Resolved]
  - Rash [Unknown]
  - Injection site reaction [Unknown]
  - Rash [Not Recovered/Not Resolved]
  - Injection site rash [Unknown]
  - Product dose omission [Unknown]

NARRATIVE: CASE EVENT DATE: 2019
